FAERS Safety Report 14830172 (Version 2)
Quarter: 2018Q3

REPORT INFORMATION
  Report Type: Report from Study
  Country: US (occurrence: US)
  Receive Date: 20180430
  Receipt Date: 20180720
  Transmission Date: 20181010
  Serious: No
  Sender: FDA-Public Use
  Company Number: US-AMGEN-USASL2018048732

PATIENT
  Age: 70 Year
  Sex: Male

DRUGS (5)
  1. REPATHA [Suspect]
     Active Substance: EVOLOCUMAB
     Indication: BLOOD CHOLESTEROL INCREASED
     Dosage: 140 MG, Q2WK
     Route: 065
     Dates: start: 2017
  2. ISOSORBIDE. [Concomitant]
     Active Substance: ISOSORBIDE
     Dosage: UNK
  3. ASPIRIN. [Concomitant]
     Active Substance: ASPIRIN
     Dosage: UNK
  4. LISINOPRIL. [Concomitant]
     Active Substance: LISINOPRIL
     Dosage: UNK
  5. OMEPRAZOLE. [Concomitant]
     Active Substance: OMEPRAZOLE
     Dosage: UNK

REACTIONS (12)
  - Back pain [Unknown]
  - Abdominal pain upper [Unknown]
  - Syncope [Unknown]
  - Dizziness [Unknown]
  - Tinnitus [Unknown]
  - Feeling cold [Unknown]
  - Joint noise [Unknown]
  - Chills [Unknown]
  - Headache [Unknown]
  - Muscle spasms [Unknown]
  - Visual impairment [Unknown]
  - Dysphonia [Unknown]

NARRATIVE: CASE EVENT DATE: 201803
